FAERS Safety Report 15431730 (Version 1)
Quarter: 2018Q3

REPORT INFORMATION
  Report Type: Spontaneous
  Country: LV (occurrence: LV)
  Receive Date: 20180926
  Receipt Date: 20180926
  Transmission Date: 20181010
  Serious: Yes (Other)
  Sender: FDA-Public Use
  Company Number: LV-MYLANLABS-2018M1069940

PATIENT
  Age: 72 Year
  Sex: Male

DRUGS (28)
  1. CEFAZOLIN [Suspect]
     Active Substance: CEFAZOLIN
     Dosage: 1 G, QD
     Route: 042
  2. AMPICILLIN [Concomitant]
     Active Substance: AMPICILLIN
     Indication: POST PROCEDURAL COMPLICATION
  3. TRAMADOL. [Concomitant]
     Active Substance: TRAMADOL
     Indication: ANALGESIC THERAPY
     Dosage: 200 MG, QD
     Route: 030
     Dates: start: 20101127
  4. CORDARONE [Concomitant]
     Active Substance: AMIODARONE HYDROCHLORIDE
     Indication: PRODUCT USED FOR UNKNOWN INDICATION
     Dosage: UNK
  5. FLUCONAZOLE. [Concomitant]
     Active Substance: FLUCONAZOLE
     Indication: POST PROCEDURAL COMPLICATION
     Dosage: UNK
  6. DIAZEPAM. [Concomitant]
     Active Substance: DIAZEPAM
     Indication: PRODUCT USED FOR UNKNOWN INDICATION
     Dosage: 0.5% ? 5ML
     Route: 042
  7. DEXAMETHASONE. [Concomitant]
     Active Substance: DEXAMETHASONE
     Indication: PRODUCT USED FOR UNKNOWN INDICATION
     Dosage: 12 MG, UNK
     Route: 042
  8. TRAMADOL. [Concomitant]
     Active Substance: TRAMADOL
     Indication: POST PROCEDURAL COMPLICATION
     Dosage: 100 MG, BID
  9. METROGYL                           /00012501/ [Concomitant]
     Indication: NECROTISING FASCIITIS
  10. AMOKSIKLAV                         /00756801/ [Concomitant]
     Indication: PRODUCT USED FOR UNKNOWN INDICATION
     Dosage: 1 DF, TID
  11. CEFTRIAXONE. [Suspect]
     Active Substance: CEFTRIAXONE
     Indication: NECROTISING FASCIITIS
  12. CEFAZOLIN [Suspect]
     Active Substance: CEFAZOLIN
     Indication: POST PROCEDURAL COMPLICATION
     Dosage: 3000 MG, QD
     Route: 042
     Dates: start: 20101124
  13. DALACIN C                          /00166001/ [Concomitant]
     Indication: POST PROCEDURAL COMPLICATION
     Dosage: 2400 MG, QD
  14. DALACIN C                          /00166001/ [Concomitant]
     Indication: NECROTISING FASCIITIS
     Dosage: 1200 MG, BID
  15. CEFAZOLIN [Suspect]
     Active Substance: CEFAZOLIN
     Dosage: 1000 MG, TID
     Route: 042
  16. FLUCONAZOLE. [Concomitant]
     Active Substance: FLUCONAZOLE
     Indication: NECROTISING FASCIITIS
  17. BETALOC ZOK [Concomitant]
     Active Substance: METOPROLOL SUCCINATE
     Indication: PRODUCT USED FOR UNKNOWN INDICATION
     Dosage: UNK
  18. GENTAMICIN. [Suspect]
     Active Substance: GENTAMICIN
     Indication: NECROTISING FASCIITIS
  19. AMPICILLIN [Concomitant]
     Active Substance: AMPICILLIN
     Indication: NECROTISING FASCIITIS
     Dosage: UNK
  20. CHLORHEXIDINE [Concomitant]
     Active Substance: CHLORHEXIDINE
     Indication: PRODUCT USED FOR UNKNOWN INDICATION
     Dosage: UNK
  21. DICLOFENAC [Suspect]
     Active Substance: DICLOFENAC
     Indication: POST PROCEDURAL COMPLICATION
     Dosage: 75 MG, BID
     Route: 042
  22. CEFTRIAXONE. [Suspect]
     Active Substance: CEFTRIAXONE
     Indication: POST PROCEDURAL COMPLICATION
     Dosage: UNK
  23. GENTAMICIN. [Suspect]
     Active Substance: GENTAMICIN
     Indication: POST PROCEDURAL COMPLICATION
     Dosage: UNK
  24. GELOFUSINE                         /00523001/ [Concomitant]
     Active Substance: POLYGELINE\POTASSIUM CHLORIDE\SODIUM CHLORIDE
     Indication: PRODUCT USED FOR UNKNOWN INDICATION
     Dosage: 500 ML, UNK
  25. SODIUM CHLORIDE. [Concomitant]
     Active Substance: SODIUM CHLORIDE
     Indication: PRODUCT USED FOR UNKNOWN INDICATION
     Dosage: 1000 ML, UNK
  26. GLUCOSE                            /00203503/ [Concomitant]
     Active Substance: DEXTROSE MONOHYDRATE
     Indication: PRODUCT USED FOR UNKNOWN INDICATION
     Dosage: 500 ML, UNK
  27. METROGYL                           /00012501/ [Concomitant]
     Indication: POST PROCEDURAL COMPLICATION
     Dosage: 15 MG/KG, UNK
  28. IBUPROFEN. [Concomitant]
     Active Substance: IBUPROFEN
     Indication: PRODUCT USED FOR UNKNOWN INDICATION
     Dosage: 400 MG, TID

REACTIONS (4)
  - Gastric mucosa erythema [Unknown]
  - Enterocolitis [Unknown]
  - Gastrooesophageal sphincter insufficiency [Unknown]
  - Duodenal ulcer [Unknown]
